FAERS Safety Report 14605255 (Version 2)
Quarter: 2018Q1

REPORT INFORMATION
  Report Type: Spontaneous
  Country: DE (occurrence: DE)
  Receive Date: 20180306
  Receipt Date: 20180318
  Transmission Date: 20180509
  Serious: Yes (Hospitalization)
  Sender: FDA-Public Use
  Company Number: PHHY2018DE035719

PATIENT
  Age: 52 Year
  Sex: Male

DRUGS (9)
  1. PREDNISONE. [Suspect]
     Active Substance: PREDNISONE
     Indication: THROMBOCYTOPENIA
     Route: 065
  2. CIPROFLOXACIN. [Concomitant]
     Active Substance: CIPROFLOXACIN
     Indication: ATYPICAL PNEUMONIA
     Dosage: 400 MG, BID
     Route: 048
  3. VORICONAZOLE. [Suspect]
     Active Substance: VORICONAZOLE
     Indication: ATYPICAL PNEUMONIA
     Dosage: 200 MG, BID
     Route: 048
  4. INSULIN [Concomitant]
     Active Substance: INSULIN NOS
     Indication: INSULIN-REQUIRING TYPE 2 DIABETES MELLITUS
     Route: 065
  5. IMIPENEM [Concomitant]
     Active Substance: IMIPENEM
     Indication: ATYPICAL PNEUMONIA
     Dosage: 500 MG, QID
     Route: 042
  6. VORICONAZOLE. [Suspect]
     Active Substance: VORICONAZOLE
     Dosage: 400 MG, BID
     Route: 048
  7. MEROPENEM. [Suspect]
     Active Substance: MEROPENEM
     Indication: NOSOCOMIAL INFECTION
     Dosage: 1 G, TID
     Route: 065
  8. LEVETIRACETAM. [Concomitant]
     Active Substance: LEVETIRACETAM
     Indication: SEIZURE
     Dosage: UNK
     Route: 065
  9. LINEZOLID. [Suspect]
     Active Substance: LINEZOLID
     Indication: NOSOCOMIAL INFECTION
     Dosage: 600 MG, BID
     Route: 065

REACTIONS (23)
  - Cerebral aspergillosis [Recovered/Resolved]
  - Pyrexia [Recovered/Resolved]
  - Bronchoscopy abnormal [Recovered/Resolved]
  - General physical health deterioration [Recovered/Resolved]
  - Brain abscess [Recovered/Resolved]
  - Granuloma [Recovered/Resolved]
  - Eosinophilia [Recovered/Resolved]
  - Leukocytosis [Recovered/Resolved]
  - C-reactive protein increased [Recovered/Resolved]
  - Central nervous system lesion [Recovered/Resolved]
  - Paraesthesia [Recovered/Resolved]
  - Partial seizures [Recovered/Resolved]
  - Nausea [Recovered/Resolved]
  - Rales [Recovered/Resolved]
  - Atypical pneumonia [Recovered/Resolved]
  - Aspergillus infection [Recovered/Resolved]
  - Vomiting [Recovered/Resolved]
  - Tracheitis [Recovered/Resolved]
  - Muscular weakness [Recovered/Resolved]
  - Drug ineffective [Unknown]
  - Headache [Recovered/Resolved]
  - Neutrophilia [Recovered/Resolved]
  - Cough [Recovered/Resolved]
